FAERS Safety Report 24611840 (Version 1)
Quarter: 2024Q4

REPORT INFORMATION
  Report Type: Spontaneous
  Country: US (occurrence: US)
  Receive Date: 20241113
  Receipt Date: 20241113
  Transmission Date: 20250115
  Serious: Yes (Other)
  Sender: AMGEN
  Company Number: US-AMGEN-USASP2024221113

PATIENT
  Age: 73 Year
  Sex: Female

DRUGS (6)
  1. PREDNISONE [Suspect]
     Active Substance: PREDNISONE
     Indication: Pemphigoid
     Dosage: UNK
     Route: 065
  2. PREDNISONE [Suspect]
     Active Substance: PREDNISONE
     Dosage: UNK (LOW DOSE)
     Route: 065
  3. DOXYCYCLINE [Suspect]
     Active Substance: DOXYCYCLINE
     Indication: Product used for unknown indication
     Dosage: UNK
     Route: 065
  4. DUPILUMAB [Suspect]
     Active Substance: DUPILUMAB
     Indication: Product used for unknown indication
     Dosage: UNK
     Route: 065
  5. NIACINAMIDE [Concomitant]
     Active Substance: NIACINAMIDE
  6. DAPSONE [Concomitant]
     Active Substance: DAPSONE
     Dosage: UNK, LOW DOSE

REACTIONS (4)
  - Gastric ulcer haemorrhage [Recovering/Resolving]
  - Blood loss anaemia [Recovering/Resolving]
  - Gastritis [Recovering/Resolving]
  - Arthralgia [Recovering/Resolving]
